FAERS Safety Report 8576993-8 (Version None)
Quarter: 2012Q3

REPORT INFORMATION
  Report Type: 
  Country: None (occurrence: None)
  Receive Date: 20120807
  Receipt Date: 20120727
  Transmission Date: 20120928
  Serious: Yes (Hospitalization)
  Sender: FDA-Public Use
  Company Number: US-BAYER-2012-076589

PATIENT
  Age: 26 Year
  Sex: Female

DRUGS (8)
  1. ULTRAM [Concomitant]
     Indication: CHEST PAIN
  2. YASMIN [Suspect]
  3. ZELNORM [Concomitant]
     Indication: IRRITABLE BOWEL SYNDROME
     Dosage: 60 MG, BID
     Dates: start: 20061226, end: 20070315
  4. BACLOFEN [Concomitant]
     Indication: CHEST PAIN
  5. XOPENEX [Concomitant]
  6. MOTRIN [Concomitant]
     Indication: CHEST PAIN
  7. LORTAB [Concomitant]
     Indication: CHEST PAIN
  8. PROVENTIL [Concomitant]
     Indication: DYSPNOEA
     Dosage: 2 PUFFS

REACTIONS (1)
  - PULMONARY EMBOLISM [None]
